FAERS Safety Report 8262169-0 (Version None)
Quarter: 2012Q2

REPORT INFORMATION
  Report Type: 
  Country: None (occurrence: None)
  Receive Date: 20120405
  Receipt Date: 20120326
  Transmission Date: 20120825
  Serious: Yes (Other)
  Sender: FDA-Public Use
  Company Number: BE-ROCHE-1052526

PATIENT

DRUGS (1)
  1. ACTEMRA [Suspect]
     Indication: POLYARTHRITIS
     Route: 065

REACTIONS (1)
  - TENDON RUPTURE [None]
